FAERS Safety Report 6977531-3 (Version None)
Quarter: 2010Q3

REPORT INFORMATION
  Report Type: 
  Country: None (occurrence: None)
  Receive Date: 20100910
  Receipt Date: 20100901
  Transmission Date: 20110219
  Serious: Yes (Death, Other)
  Sender: FDA-Public Use
  Company Number: US-AMGEN-QUU435714

PATIENT
  Sex: Male

DRUGS (1)
  1. NPLATE [Suspect]
     Indication: IDIOPATHIC THROMBOCYTOPENIC PURPURA
     Dates: end: 20090120

REACTIONS (4)
  - DRUG INEFFECTIVE [None]
  - HAEMATOLOGICAL MALIGNANCY [None]
  - MYELOPROLIFERATIVE DISORDER [None]
  - SUBDURAL HAEMATOMA [None]
